FAERS Safety Report 22185833 (Version 1)
Quarter: 2023Q2

REPORT INFORMATION
  Report Type: Spontaneous
  Country: CA (occurrence: None)
  Receive Date: 20230407
  Receipt Date: 20230407
  Transmission Date: 20230722
  Serious: Yes (Other)
  Sender: FDA-Public Use
  Company Number: CA-PFIZER INC-202201249284

PATIENT
  Age: 65 Year
  Sex: Female
  Weight: 108.86 kg

DRUGS (1)
  1. METHOTREXATE [Suspect]
     Active Substance: METHOTREXATE
     Indication: Product used for unknown indication
     Route: 065
     Dates: start: 2014, end: 2014

REACTIONS (4)
  - Arthralgia [Unknown]
  - Liver function test increased [Unknown]
  - Nausea [Unknown]
  - Arthropathy [Unknown]
